FAERS Safety Report 23661818 (Version 1)
Quarter: 2024Q1

REPORT INFORMATION
  Report Type: Spontaneous
  Country: US (occurrence: US)
  Receive Date: 20240322
  Receipt Date: 20240322
  Transmission Date: 20240409
  Serious: No
  Sender: FDA-Public Use
  Company Number: US-ASPEN-GLO2024US001178

PATIENT

DRUGS (9)
  1. BENZTROPINE MESYLATE [Interacting]
     Active Substance: BENZTROPINE MESYLATE
     Indication: Parkinsonism
     Dosage: 1 MG, BID
     Route: 065
  2. FLUPHENAZINE [Interacting]
     Active Substance: FLUPHENAZINE
     Indication: Parkinsonism
     Dosage: 10 MG, QD
     Route: 048
  3. FLUPHENAZINE DECANOATE [Interacting]
     Active Substance: FLUPHENAZINE DECANOATE
     Indication: Catatonia
     Dosage: UNK
     Route: 065
  4. LORAZEPAM [Interacting]
     Active Substance: LORAZEPAM
     Indication: Catatonia
     Dosage: 1 MG, TID
     Route: 048
  5. LORAZEPAM [Interacting]
     Active Substance: LORAZEPAM
     Dosage: 3 MG, QID, ON HD 23
     Route: 065
  6. LORAZEPAM [Interacting]
     Active Substance: LORAZEPAM
     Dosage: TAPERED BEGINNING ON HD 35
     Route: 065
  7. LORAZEPAM [Interacting]
     Active Substance: LORAZEPAM
     Dosage: 0.5 MG, TID, BY HD 60
     Route: 065
  8. VALPROIC ACID [Interacting]
     Active Substance: VALPROIC ACID
     Indication: Catatonia
     Dosage: UNK
     Route: 048
  9. MEMANTINE [Interacting]
     Active Substance: MEMANTINE
     Indication: Catatonia
     Dosage: UNK
     Route: 065

REACTIONS (1)
  - Labelled drug-drug interaction issue [Unknown]
